FAERS Safety Report 8984349 (Version 3)
Quarter: 2013Q1

REPORT INFORMATION
  Report Type: Spontaneous
  Country: JP (occurrence: JP)
  Receive Date: 20121226
  Receipt Date: 20130225
  Transmission Date: 20140127
  Serious: Yes (Other)
  Sender: FDA-Public Use
  Company Number: JP-SP-2012-12434

PATIENT
  Age: 69 Year
  Sex: 0

DRUGS (2)
  1. IMMUCYST [Suspect]
     Indication: BLADDER CANCER
     Dosage: NOT REPORTED
     Route: 043
     Dates: start: 20121114, end: 20121121
  2. UNSPECIFIED [Suspect]
     Dosage: NOT REPORTED
     Route: 065

REACTIONS (2)
  - Disseminated tuberculosis [Unknown]
  - Dehydration [Unknown]
